FAERS Safety Report 11660319 (Version 1)
Quarter: 2015Q4

REPORT INFORMATION
  Report Type: Spontaneous
  Country: US (occurrence: None)
  Receive Date: 20151023
  Receipt Date: 20151023
  Transmission Date: 20160304
  Serious: Yes (Hospitalization)
  Sender: FDA-Public Use
  Company Number: None

PATIENT
  Age: 85 Year
  Sex: Male
  Weight: 80 kg

DRUGS (1)
  1. PHENYTOIN (GENERIC - MYLAN) [Suspect]
     Active Substance: PHENYTOIN
     Indication: SEIZURE
     Dates: start: 20140410, end: 20140414

REACTIONS (4)
  - Somnolence [None]
  - Mental status changes [None]
  - Nystagmus [None]
  - Confusional state [None]

NARRATIVE: CASE EVENT DATE: 20140414
